FAERS Safety Report 23164326 (Version 5)
Quarter: 2023Q4

REPORT INFORMATION
  Report Type: Spontaneous
  Country: TW (occurrence: TW)
  Receive Date: 20231109
  Receipt Date: 20231227
  Transmission Date: 20240109
  Serious: Yes (Hospitalization)
  Sender: FDA-Public Use
  Company Number: TW-Accord-389310

PATIENT
  Age: 62 Year
  Sex: Male
  Weight: 80.5 kg

DRUGS (36)
  1. FLUOROURACIL [Suspect]
     Active Substance: FLUOROURACIL
     Indication: Squamous cell carcinoma of head and neck
     Route: 042
     Dates: start: 20231004, end: 20231008
  2. CISPLATIN [Suspect]
     Active Substance: CISPLATIN
     Indication: Squamous cell carcinoma of head and neck
     Dosage: 1Q3W
     Route: 042
     Dates: start: 20231003
  3. PEMBROLIZUMAB [Concomitant]
     Active Substance: PEMBROLIZUMAB
     Indication: Squamous cell carcinoma of head and neck
     Dosage: 1Q3W
     Route: 042
     Dates: start: 20231003, end: 20231114
  4. CIMETIDINE [Concomitant]
     Active Substance: CIMETIDINE
     Dates: start: 20231003, end: 20231003
  5. DIPHENHYDRAMINE [Concomitant]
     Active Substance: DIPHENHYDRAMINE
     Dates: start: 20231003, end: 20231017
  6. PALONOSETRON [Concomitant]
     Active Substance: PALONOSETRON
     Dates: start: 20231003, end: 20231003
  7. METFORMIN HYDROCHLORIDE [Concomitant]
     Active Substance: METFORMIN HYDROCHLORIDE
     Dates: start: 2022, end: 20231018
  8. BISOPROLOL FUMARATE [Concomitant]
     Active Substance: BISOPROLOL FUMARATE
     Dates: start: 2022
  9. AMLODIPINE [Concomitant]
     Active Substance: AMLODIPINE BESYLATE
     Dates: start: 2022, end: 20231020
  10. VALSARTAN [Concomitant]
     Active Substance: VALSARTAN
     Dates: start: 2022, end: 20231020
  11. ACETAMINOPHEN [Concomitant]
     Active Substance: ACETAMINOPHEN
     Dates: start: 20231003, end: 20231020
  12. TOLVAPTAN [Concomitant]
     Active Substance: TOLVAPTAN
     Dates: start: 20231003, end: 20231005
  13. FOSAPREPITANT [Concomitant]
     Active Substance: FOSAPREPITANT
     Dates: start: 20231003, end: 20231004
  14. ESOMEPRAZOLE [Concomitant]
     Active Substance: ESOMEPRAZOLE
     Dates: start: 20231005, end: 20231011
  15. BROWN MIXTURE [Concomitant]
     Dates: start: 20231003, end: 20231027
  16. METOCLOPRAMIDE [Concomitant]
     Active Substance: METOCLOPRAMIDE
     Dates: start: 20231005, end: 20231018
  17. DIPHENIDOL [Concomitant]
     Active Substance: DIPHENIDOL
     Dates: start: 20231005, end: 20231011
  18. CINNARIZINE [Concomitant]
     Active Substance: CINNARIZINE
     Dates: start: 20231006, end: 20231009
  19. CHLORPROMAZINE [Concomitant]
     Active Substance: CHLORPROMAZINE
     Dates: start: 20231006, end: 20231011
  20. ACETYLCYSTEINE [Concomitant]
     Active Substance: ACETYLCYSTEINE
     Dates: start: 20231009, end: 20231027
  21. VITAMIN B COMPLEX [Concomitant]
     Active Substance: CYANOCOBALAMIN\DEXPANTHENOL\NIACINAMIDE\PYRIDOXINE HYDROCHLORIDE\RIBOFLAVIN 5^-PHOSPHATE SODIUM\THIA
     Dates: start: 20231008, end: 20231011
  22. ALANINE [Concomitant]
     Active Substance: ALANINE
     Dates: start: 20231008, end: 20231017
  23. SODIUM CHLORIDE [Concomitant]
     Active Substance: SODIUM CHLORIDE
     Dates: start: 20231011, end: 20231012
  24. KCL [Concomitant]
     Active Substance: POTASSIUM CHLORIDE
     Dates: start: 20231011, end: 20231016
  25. TRIAMCINOLONE [Concomitant]
     Active Substance: TRIAMCINOLONE
     Dates: start: 20231011, end: 20231011
  26. AMOXICILLIN [Concomitant]
     Active Substance: AMOXICILLIN
     Dates: start: 20231012, end: 20231014
  27. CLAVULANIC ACID [Concomitant]
     Active Substance: CLAVULANIC ACID
     Dates: start: 20231012, end: 20231014
  28. TRAMADOL [Concomitant]
     Active Substance: TRAMADOL\TRAMADOL HYDROCHLORIDE
     Dates: start: 20231012, end: 20231020
  29. BENZYDAMINE [Concomitant]
     Active Substance: BENZYDAMINE
     Dates: start: 20231012, end: 20231018
  30. PIPERACILLIN [Concomitant]
     Active Substance: PIPERACILLIN
     Dates: start: 20231014, end: 20231019
  31. TAZOBACTAM [Concomitant]
     Active Substance: TAZOBACTAM
     Dates: start: 20231014, end: 20231019
  32. VITAMIN B2 [Concomitant]
     Active Substance: RIBOFLAVIN
     Dates: start: 20231018, end: 20231020
  33. METFORMIN [Concomitant]
     Active Substance: METFORMIN HYDROCHLORIDE
     Dates: start: 20231018
  34. ZINC GLUCONATE [Concomitant]
     Active Substance: ZINC GLUCONATE
     Dates: start: 20231018, end: 20231020
  35. THIAMINE [Concomitant]
     Active Substance: THIAMINE
     Dates: start: 20231018, end: 20231020
  36. DEXLANSOPRAZOLE [Concomitant]
     Active Substance: DEXLANSOPRAZOLE
     Dates: start: 20231020, end: 20231113

REACTIONS (1)
  - White blood cell count decreased [Recovered/Resolved]

NARRATIVE: CASE EVENT DATE: 20231011
